FAERS Safety Report 24143642 (Version 4)
Quarter: 2024Q3

REPORT INFORMATION
  Report Type: Spontaneous
  Country: FR (occurrence: FR)
  Receive Date: 20240727
  Receipt Date: 20240930
  Transmission Date: 20241017
  Serious: Yes (Death, Other)
  Sender: CELLTRION
  Company Number: FR-CELLTRION INC.-2024FR016839

PATIENT

DRUGS (40)
  1. RITUXIMAB [Suspect]
     Active Substance: RITUXIMAB
     Indication: Post transplant lymphoproliferative disorder
     Dosage: 375 MG/M2, 1/WEEK
  2. RITUXIMAB [Suspect]
     Active Substance: RITUXIMAB
     Indication: Post transplant lymphoproliferative disorder
     Dosage: 375 MG/M2, 1/WEEK
  3. RITUXIMAB [Suspect]
     Active Substance: RITUXIMAB
     Indication: Lymphoma
     Dosage: 375 MG/M2, 1/WEEK
  4. RITUXIMAB [Suspect]
     Active Substance: RITUXIMAB
     Dosage: 375 MG/M2, 1/WEEK
  5. RITUXIMAB [Suspect]
     Active Substance: RITUXIMAB
     Dosage: FOUR INFUSIONS OF 375 MG/M2 ONE WEEK APART
  6. RITUXIMAB [Suspect]
     Active Substance: RITUXIMAB
     Dosage: UNK
     Route: 065
  7. CYCLOPHOSPHAMIDE [Suspect]
     Active Substance: CYCLOPHOSPHAMIDE
     Indication: Post transplant lymphoproliferative disorder
     Route: 065
  8. CYCLOPHOSPHAMIDE [Suspect]
     Active Substance: CYCLOPHOSPHAMIDE
     Indication: Lymphoma
     Dosage: UNK
  9. DOXORUBICIN [Suspect]
     Active Substance: DOXORUBICIN
     Indication: Post transplant lymphoproliferative disorder
     Dosage: UNK
     Route: 065
  10. DOXORUBICIN [Suspect]
     Active Substance: DOXORUBICIN
     Indication: Lymphoma
     Dosage: UNK
  11. ETOPOSIDE [Suspect]
     Active Substance: ETOPOSIDE
     Indication: Post transplant lymphoproliferative disorder
     Route: 065
  12. ETOPOSIDE [Suspect]
     Active Substance: ETOPOSIDE
     Indication: Lymphoma
     Dosage: UNK
  13. EVEROLIMUS [Suspect]
     Active Substance: EVEROLIMUS
     Indication: Post transplant lymphoproliferative disorder
     Route: 065
  14. EVEROLIMUS [Suspect]
     Active Substance: EVEROLIMUS
     Indication: Lymphoma
  15. FAVIPIRAVIR [Suspect]
     Active Substance: FAVIPIRAVIR
     Indication: Norovirus infection
     Dosage: 1200 MILLIGRAM, EVERY 0.5 DAY (D1 TO 13)
     Route: 065
  16. FAVIPIRAVIR [Suspect]
     Active Substance: FAVIPIRAVIR
     Dosage: 2600 MILLIGRAM, EVERY 0.5 DAY (AT DAY 33)
     Route: 065
  17. FAVIPIRAVIR [Suspect]
     Active Substance: FAVIPIRAVIR
     Dosage: 2400 MILLIGRAM, EVERY 0.5 DAY (D24 TO 32)
     Route: 065
  18. FAVIPIRAVIR [Suspect]
     Active Substance: FAVIPIRAVIR
     Dosage: 1600 MILLIGRAM, EVERY 0.5 DAY (D14 TO 23)
     Route: 065
  19. FAVIPIRAVIR [Suspect]
     Active Substance: FAVIPIRAVIR
     Dosage: 2600 MILLIGRAM, BID (AT DAY 33)
  20. FAVIPIRAVIR [Suspect]
     Active Substance: FAVIPIRAVIR
     Dosage: 1200 MILLIGRAM, BID (D1 TO 13)
  21. FAVIPIRAVIR [Suspect]
     Active Substance: FAVIPIRAVIR
     Dosage: 1600 MILLIGRAM, BID (D14 TO 23)
  22. FAVIPIRAVIR [Suspect]
     Active Substance: FAVIPIRAVIR
     Dosage: 2400 MILLIGRAM, BID (D24 TO 32)
  23. GEMCITABINE [Suspect]
     Active Substance: GEMCITABINE
     Indication: Post transplant lymphoproliferative disorder
     Dosage: UNK
     Route: 065
  24. GEMCITABINE [Suspect]
     Active Substance: GEMCITABINE
     Indication: Lymphoma
     Dosage: UNK
  25. IFOSFAMIDE [Suspect]
     Active Substance: IFOSFAMIDE
     Indication: Post transplant lymphoproliferative disorder
     Route: 065
  26. IFOSFAMIDE [Suspect]
     Active Substance: IFOSFAMIDE
     Indication: Lymphoma
  27. METRONIDAZOLE [Suspect]
     Active Substance: METRONIDAZOLE
     Indication: Giardiasis
     Route: 065
  28. METRONIDAZOLE [Suspect]
     Active Substance: METRONIDAZOLE
     Indication: Parasitic gastroenteritis
  29. NITAZOXANIDE [Suspect]
     Active Substance: NITAZOXANIDE
     Indication: Norovirus infection
     Dosage: 500 MILLIGRAM, EVERY 0.5 DAY
     Route: 065
  30. NITAZOXANIDE [Suspect]
     Active Substance: NITAZOXANIDE
     Dosage: 500 MILLIGRAM, BID
  31. OXALIPLATIN [Suspect]
     Active Substance: OXALIPLATIN
     Indication: Post transplant lymphoproliferative disorder
     Route: 065
  32. OXALIPLATIN [Suspect]
     Active Substance: OXALIPLATIN
     Indication: Lymphoma
  33. PREDNISOLONE [Suspect]
     Active Substance: PREDNISOLONE
     Indication: Post transplant lymphoproliferative disorder
     Dosage: UNK
     Route: 065
  34. PREDNISOLONE [Suspect]
     Active Substance: PREDNISOLONE
     Indication: Lymphoma
     Dosage: UNK
  35. TACROLIMUS [Suspect]
     Active Substance: TACROLIMUS
     Indication: Post transplant lymphoproliferative disorder
     Route: 065
  36. TACROLIMUS [Suspect]
     Active Substance: TACROLIMUS
     Indication: Lymphoma
  37. VINCRISTINE [Suspect]
     Active Substance: VINCRISTINE
     Indication: Post transplant lymphoproliferative disorder
     Dosage: UNK
     Route: 065
  38. VINCRISTINE [Suspect]
     Active Substance: VINCRISTINE
     Indication: Lymphoma
     Dosage: UNK
  39. CYCLOPHOSPHAMIDE [Suspect]
     Active Substance: CYCLOPHOSPHAMIDE
     Indication: Product used for unknown indication
     Dosage: UNK
     Route: 065
  40. DOXORUBICIN HYDROCHLORIDE [Suspect]
     Active Substance: DOXORUBICIN HYDROCHLORIDE
     Indication: Product used for unknown indication
     Dosage: UNK
     Route: 065

REACTIONS (9)
  - Lymphoma [Fatal]
  - Disease progression [Fatal]
  - Norovirus infection [Fatal]
  - Drug ineffective [Fatal]
  - Treatment failure [Fatal]
  - Parasitic gastroenteritis [Recovered/Resolved]
  - Pyelonephritis acute [Unknown]
  - Sepsis [Unknown]
  - Giardiasis [Recovered/Resolved]
